FAERS Safety Report 7125414-0 (Version None)
Quarter: 2010Q4

REPORT INFORMATION
  Report Type: 
  Country: None (occurrence: None)
  Receive Date: 20101129
  Receipt Date: 20101122
  Transmission Date: 20110411
  Serious: Yes (Death)
  Sender: FDA-Public Use
  Company Number: CA-ELI_LILLY_AND_COMPANY-CA201011005777

PATIENT
  Age: 42 Year
  Sex: Male

DRUGS (1)
  1. ADCIRCA [Suspect]
     Dosage: 40 MG, DAILY (1/D)
     Dates: start: 20100930

REACTIONS (1)
  - DEATH [None]
